FAERS Safety Report 9389113 (Version 1)
Quarter: 2013Q3

REPORT INFORMATION
  Report Type: Spontaneous
  Country: US (occurrence: US)
  Receive Date: 20130708
  Receipt Date: 20130708
  Transmission Date: 20140515
  Serious: No
  Sender: FDA-Public Use
  Company Number: US-AMGEN-USASP2013039697

PATIENT
  Age: 56 Year
  Sex: Female
  Weight: 63.49 kg

DRUGS (2)
  1. ENBREL [Suspect]
     Indication: PRODUCT USED FOR UNKNOWN INDICATION
     Dosage: UNK UNK, QWK
     Route: 065
     Dates: start: 2013, end: 2013
  2. HUMIRA [Suspect]
     Dosage: 40 MG, 2 TIMES/WK
     Route: 065
     Dates: start: 2012

REACTIONS (2)
  - Unevaluable event [Unknown]
  - Injection site swelling [Unknown]
